FAERS Safety Report 5959402-4 (Version None)
Quarter: 2008Q4

REPORT INFORMATION
  Report Type: 
  Country: None (occurrence: None)
  Receive Date: 20081120
  Receipt Date: 20080819
  Transmission Date: 20090506
  Serious: No
  Sender: FDA-Public Use
  Company Number: A0743291A

PATIENT
  Age: 65 Year
  Sex: Male

DRUGS (7)
  1. VERAMYST [Suspect]
     Indication: VASOMOTOR RHINITIS
     Dosage: 1SPR THREE TIMES PER DAY
     Route: 045
     Dates: start: 20080604
  2. PRILOSEC [Concomitant]
  3. LEVOXYL [Concomitant]
  4. VICODIN [Concomitant]
  5. PLAVIX [Concomitant]
  6. COREG [Concomitant]
  7. LIPITOR [Concomitant]

REACTIONS (1)
  - HYPOAESTHESIA ORAL [None]
